FAERS Safety Report 21849625 (Version 1)
Quarter: 2023Q1

REPORT INFORMATION
  Report Type: Spontaneous
  Country: US (occurrence: None)
  Receive Date: 20230111
  Receipt Date: 20230111
  Transmission Date: 20230418
  Serious: Yes (Death)
  Sender: FDA-Public Use
  Company Number: None

PATIENT
  Age: 8 Year
  Sex: Male
  Weight: 26.8 kg

DRUGS (2)
  1. KYMRIAH [Suspect]
     Active Substance: TISAGENLECLEUCEL
     Route: 042
  2. TOCILIZUMAB [Concomitant]
     Active Substance: TOCILIZUMAB
     Dates: start: 20221219, end: 20221225

REACTIONS (6)
  - Cytokine release syndrome [None]
  - Oliguria [None]
  - Hypervolaemia [None]
  - Multiple organ dysfunction syndrome [None]
  - Distributive shock [None]
  - Lactic acidosis [None]

NARRATIVE: CASE EVENT DATE: 20221225
